FAERS Safety Report 4455642-4 (Version None)
Quarter: 2004Q3

REPORT INFORMATION
  Report Type: 
  Country: None (occurrence: None)
  Receive Date: 20040920
  Receipt Date: 20040913
  Transmission Date: 20050211
  Serious: Yes (Death, Hospitalization, Other)
  Sender: FDA-Public Use
  Company Number: US-JNJFOC-20040903539

PATIENT
  Age: 30 Year
  Sex: Female

DRUGS (1)
  1. EXTRA STRENGTH TYLENOL [Suspect]
     Indication: BACK PAIN
     Dosage: ORAL
     Route: 048

REACTIONS (7)
  - ACCIDENTAL OVERDOSE [None]
  - ANALGESIC DRUG LEVEL INCREASED [None]
  - BRAIN DEATH [None]
  - BRAIN OEDEMA [None]
  - CONFUSIONAL STATE [None]
  - HEPATIC FAILURE [None]
  - LETHARGY [None]
